FAERS Safety Report 23604288 (Version 2)
Quarter: 2024Q1

REPORT INFORMATION
  Report Type: Report from Study
  Country: CA (occurrence: CA)
  Receive Date: 20240307
  Receipt Date: 20240327
  Transmission Date: 20240409
  Serious: Yes (Other)
  Sender: FDA-Public Use
  Company Number: CA-ABBVIE-5607412

PATIENT
  Age: 46 Year
  Sex: Male

DRUGS (11)
  1. VENCLEXTA [Suspect]
     Active Substance: VENETOCLAX
     Indication: Acute myeloid leukaemia recurrent
     Dosage: FORM STRENGTH: 100 MG?END DATE 2024
     Route: 048
     Dates: start: 20240104
  2. VITAMIN D3 [Concomitant]
     Active Substance: CHOLECALCIFEROL
     Indication: Bone disorder
  3. FOLIC ACID [Concomitant]
     Active Substance: FOLIC ACID
     Indication: Postoperative care
  4. MAGNESIUM GLYCINATE [Concomitant]
     Active Substance: MAGNESIUM GLYCINATE
     Indication: Hypomagnesaemia
  5. AMLODIPINE [Concomitant]
     Active Substance: AMLODIPINE BESYLATE
     Indication: Hypertension
  6. ACYCLOVIR [Concomitant]
     Active Substance: ACYCLOVIR
     Indication: Anti-infective therapy
  7. PANTOPRAZOLE [Concomitant]
     Active Substance: PANTOPRAZOLE
     Indication: Gastrooesophageal reflux disease
  8. AZACITIDINE [Concomitant]
     Active Substance: AZACITIDINE
     Indication: Product used for unknown indication
  9. SYMBICORT [Concomitant]
     Active Substance: BUDESONIDE\FORMOTEROL FUMARATE DIHYDRATE
     Indication: Asthma
  10. FLUCONAZOLE [Concomitant]
     Active Substance: FLUCONAZOLE
     Indication: Anti-infective therapy
  11. DAPSONE [Concomitant]
     Active Substance: DAPSONE
     Indication: Anti-infective therapy

REACTIONS (4)
  - Myelosuppression [Unknown]
  - Off label use [Unknown]
  - Neutrophil count decreased [Unknown]
  - Off label use [Unknown]

NARRATIVE: CASE EVENT DATE: 20240101
